FAERS Safety Report 14735100 (Version 3)
Quarter: 2018Q2

REPORT INFORMATION
  Report Type: Spontaneous
  Country: US (occurrence: US)
  Receive Date: 20180409
  Receipt Date: 20180503
  Transmission Date: 20180711
  Serious: Yes (Disabling, Other)
  Sender: FDA-Public Use
  Company Number: US-REGENERON PHARMACEUTICALS, INC.-2018-19136

PATIENT

DRUGS (2)
  1. EYLEA [Suspect]
     Active Substance: AFLIBERCEPT
     Indication: NEOVASCULAR AGE-RELATED MACULAR DEGENERATION
     Dosage: RIGHT EYE (OD), EVERY 1-2 MONTHS
     Route: 031
     Dates: start: 20150319
  2. EYLEA [Suspect]
     Active Substance: AFLIBERCEPT
     Dosage: RIGHT EYE (OD), EVERY 1-2 MONTHS, LAST DOSE PRIOR TO EVENTS
     Route: 031
     Dates: start: 20170502, end: 20170502

REACTIONS (4)
  - Endophthalmitis [Recovered/Resolved]
  - Retinal detachment [Unknown]
  - Retinal scar [Unknown]
  - Blindness unilateral [Unknown]

NARRATIVE: CASE EVENT DATE: 20170503
